FAERS Safety Report 8592027-3 (Version None)
Quarter: 2012Q3

REPORT INFORMATION
  Report Type: 
  Country: None (occurrence: None)
  Receive Date: 20120814
  Receipt Date: 20120809
  Transmission Date: 20120928
  Serious: Yes (Death, Hospitalization, Other)
  Sender: FDA-Public Use
  Company Number: PHEH2006US01763

PATIENT
  Sex: Female
  Weight: 56.235 kg

DRUGS (11)
  1. CEFTRIAXONE [Concomitant]
  2. ACYCLOVIR [Concomitant]
  3. TRIAMCINOLONE [Concomitant]
  4. NYSTATIN [Concomitant]
  5. GYNE-LOTRIMIN [Concomitant]
  6. PEPCID [Concomitant]
  7. FLUCONAZOLE [Concomitant]
  8. DOCUSATE [Concomitant]
  9. TRILEPTAL [Suspect]
     Indication: CONVULSION
     Dates: start: 20030129, end: 20030131
  10. DILANTIN [Suspect]
     Indication: CONVULSION
     Dates: start: 20021201
  11. NEURONTIN [Concomitant]

REACTIONS (52)
  - LYMPH NODE PALPABLE [None]
  - SKIN EXFOLIATION [None]
  - CONSTIPATION [None]
  - MUCOSAL INFLAMMATION [None]
  - CORONARY ARTERY DISEASE [None]
  - NEOPLASM MALIGNANT [None]
  - PROCTALGIA [None]
  - ASPARTATE AMINOTRANSFERASE INCREASED [None]
  - ALANINE AMINOTRANSFERASE INCREASED [None]
  - BLOOD ALKALINE PHOSPHATASE [None]
  - HEPATITIS [None]
  - VOMITING [None]
  - RASH ERYTHEMATOUS [None]
  - BLOOD SODIUM DECREASED [None]
  - BLOOD CALCIUM DECREASED [None]
  - ORAL PAIN [None]
  - LEUKOPENIA [None]
  - NAUSEA [None]
  - RESPIRATORY FAILURE [None]
  - HYPOXIA [None]
  - VULVAL ULCERATION [None]
  - ENCEPHALOMALACIA [None]
  - COLONOSCOPY ABNORMAL [None]
  - INSOMNIA [None]
  - PRURITUS [None]
  - STOMATITIS [None]
  - MOUTH ULCERATION [None]
  - SPUTUM PURULENT [None]
  - PYREXIA [None]
  - PERIORBITAL OEDEMA [None]
  - ORAL CANDIDIASIS [None]
  - DEATH [None]
  - CHEST PAIN [None]
  - HEADACHE [None]
  - BLOOD GASES ABNORMAL [None]
  - DYSPHAGIA [None]
  - BLOOD GLUCOSE INCREASED [None]
  - URTICARIA [None]
  - DEHYDRATION [None]
  - CACHEXIA [None]
  - ASTHENIA [None]
  - ABDOMINAL PAIN [None]
  - CONFUSIONAL STATE [None]
  - BLOOD POTASSIUM INCREASED [None]
  - HAEMOGLOBIN DECREASED [None]
  - HAEMATOCRIT DECREASED [None]
  - TOXIC EPIDERMAL NECROLYSIS [None]
  - BLISTER [None]
  - FACIAL PAIN [None]
  - VAGINAL DISCHARGE [None]
  - ACUTE SINUSITIS [None]
  - NUCLEAR MAGNETIC RESONANCE IMAGING BRAIN ABNORMAL [None]
